FAERS Safety Report 21432527 (Version 1)
Quarter: 2022Q4

REPORT INFORMATION
  Report Type: Spontaneous
  Country: JP (occurrence: JP)
  Receive Date: 20221010
  Receipt Date: 20221010
  Transmission Date: 20230112
  Serious: Yes (Life-Threatening, Hospitalization, Other)
  Sender: FDA-Public Use
  Company Number: None

PATIENT
  Age: 73 Year
  Sex: Male

DRUGS (5)
  1. DEXAMETHASONE [Suspect]
     Active Substance: DEXAMETHASONE
     Indication: COVID-19 pneumonia
     Dosage: 6 MILLIGRAM PER DAY
     Route: 048
  2. SOLU-MEDROL [Suspect]
     Active Substance: METHYLPREDNISOLONE SODIUM SUCCINATE
     Indication: Product used for unknown indication
     Dosage: 40 MILLIGRAM/DAILY
     Route: 065
  3. OXYGEN [Concomitant]
     Active Substance: OXYGEN
     Indication: Oxygen therapy
     Dosage: UNK
     Route: 065
  4. TOCILIZUMAB [Concomitant]
     Active Substance: TOCILIZUMAB
     Indication: COVID-19 pneumonia
     Dosage: 480 MILLIGRAM/DAILY
     Route: 065
  5. CASIRIVIMAB\IMDEVIMAB [Concomitant]
     Active Substance: CASIRIVIMAB\IMDEVIMAB
     Indication: COVID-19 pneumonia
     Dosage: UNK, SINGLE (600/600 MG)
     Route: 042

REACTIONS (10)
  - Pulmonary air leakage [Recovered/Resolved]
  - Pneumothorax [Recovered/Resolved]
  - Disseminated intravascular coagulation [Unknown]
  - Acute kidney injury [Unknown]
  - Bronchopleural fistula [Unknown]
  - Septic shock [Unknown]
  - Empyema [Recovered/Resolved]
  - Device related infection [Unknown]
  - Enterobacter infection [Unknown]
  - Off label use [Unknown]
